FAERS Safety Report 4962974-X (Version None)
Quarter: 2006Q2

REPORT INFORMATION
  Report Type: 
  Country: None (occurrence: None)
  Receive Date: 20060405
  Receipt Date: 20060323
  Transmission Date: 20061013
  Serious: No
  Sender: FDA-Public Use
  Company Number: 2006SE01928

PATIENT
  Age: 28 Year
  Sex: Female

DRUGS (5)
  1. SEROQUEL [Suspect]
     Route: 048
     Dates: start: 20031218, end: 20040401
  2. SEROQUEL [Suspect]
     Route: 048
     Dates: start: 20040401
  3. SEROQUEL [Suspect]
     Dosage: 600-700 MG DAILY
     Route: 048
     Dates: end: 20051123
  4. SEROQUEL [Suspect]
     Route: 048
     Dates: start: 20051123, end: 20051124
  5. SEROQUEL [Suspect]
     Route: 048
     Dates: start: 20051124

REACTIONS (1)
  - NEUTROPENIA [None]
